FAERS Safety Report 8989406 (Version 1)
Quarter: 2012Q4

REPORT INFORMATION
  Report Type: 
  Country: ES (occurrence: ES)
  Receive Date: 20121227
  Receipt Date: 20121227
  Transmission Date: 20130627
  Serious: Yes (Other)
  Sender: FDA-Public Use
  Company Number: ES-ELI_LILLY_AND_COMPANY-ES201212006568

PATIENT
  Sex: Female

DRUGS (1)
  1. STRATTERA [Suspect]
     Dosage: UNK, unknown
     Route: 065

REACTIONS (2)
  - Self injurious behaviour [Unknown]
  - Trichotillomania [Unknown]
